FAERS Safety Report 6875205-0 (Version None)
Quarter: 2010Q3

REPORT INFORMATION
  Report Type: 
  Country: None (occurrence: None)
  Receive Date: 20100727
  Receipt Date: 20070702
  Transmission Date: 20110219
  Serious: Yes (Hospitalization, Disabling, Other)
  Sender: FDA-Public Use
  Company Number: US-PFIZER INC-2006147010

PATIENT
  Sex: Female
  Weight: 72.1 kg

DRUGS (8)
  1. CELEBREX [Suspect]
     Indication: ARTHRITIS
     Route: 048
     Dates: start: 20031028
  2. VIOXX [Suspect]
     Indication: ARTHRITIS
     Dosage: ONCE OR TWICE DAILY AS NEEDED
     Route: 048
     Dates: start: 20000531, end: 20031028
  3. HYDROCHLOROTHIAZIDE [Concomitant]
     Dates: start: 20031009, end: 20031220
  4. HYDROCODONE BITARTRATE [Concomitant]
     Dates: start: 20000531
  5. LOTENSIN [Concomitant]
     Dates: start: 20010129, end: 20031121
  6. PLENDIL [Concomitant]
     Dates: start: 20031010, end: 20031109
  7. CLONIDINE [Concomitant]
     Dates: start: 20031009, end: 20060513
  8. LIPITOR [Concomitant]
     Dates: start: 20020919, end: 20060622

REACTIONS (1)
  - CEREBROVASCULAR ACCIDENT [None]
